APPROVED DRUG PRODUCT: HYDROCORTISONE VALERATE
Active Ingredient: HYDROCORTISONE VALERATE
Strength: 0.2%
Dosage Form/Route: CREAM;TOPICAL
Application: A074489 | Product #001
Applicant: COSETTE PHARMACEUTICALS INC
Approved: Aug 12, 1998 | RLD: No | RS: No | Type: DISCN